FAERS Safety Report 23798619 (Version 3)
Quarter: 2024Q3

REPORT INFORMATION
  Report Type: Spontaneous
  Country: AU (occurrence: AU)
  Receive Date: 20240430
  Receipt Date: 20240705
  Transmission Date: 20241016
  Serious: No
  Sender: PFIZER
  Company Number: AU-PFIZER INC-202400093305

PATIENT
  Sex: Female

DRUGS (1)
  1. ENBREL [Suspect]
     Active Substance: BENZYL ALCOHOL\ETANERCEPT
     Dosage: 50 MG
     Dates: start: 202307

REACTIONS (1)
  - Device mechanical issue [Unknown]
